FAERS Safety Report 12625486 (Version 1)
Quarter: 2016Q3

REPORT INFORMATION
  Report Type: Spontaneous
  Country: DE (occurrence: DE)
  Receive Date: 20160805
  Receipt Date: 20160805
  Transmission Date: 20161109
  Serious: Yes (Other)
  Sender: FDA-Public Use
  Company Number: DE-009507513-1607DEU012467

PATIENT
  Age: 70 Year
  Sex: Female
  Weight: 60 kg

DRUGS (7)
  1. NEBIVOLOL. [Concomitant]
     Active Substance: NEBIVOLOL
     Dosage: 2.5 MG, QD
  2. ESCITALOPRAM [Concomitant]
     Active Substance: ESCITALOPRAM OXALATE
     Dosage: 10 MG, QD
  3. HYDROCHLOROTHIAZIDE. [Concomitant]
     Active Substance: HYDROCHLOROTHIAZIDE
     Dosage: 12.5, QD
  4. KREON [Concomitant]
     Active Substance: PANCRELIPASE
     Indication: DEPRESSION
     Dosage: 40000MG, TID; STRENGTH: 40000 MG (REPORTED AS^ 4000 E^)
     Dates: start: 201511
  5. MIRTAZAPINE. [Suspect]
     Active Substance: MIRTAZAPINE
     Indication: DEPRESSION
     Dosage: UNK
     Route: 048
     Dates: end: 201508
  6. CANDESARTAN [Concomitant]
     Active Substance: CANDESARTAN
     Dosage: 8 MG, QD
  7. STILNOX [Concomitant]
     Active Substance: ZOLPIDEM TARTRATE
     Indication: SLEEP DISORDER
     Dosage: UNK
     Dates: start: 2015

REACTIONS (16)
  - Ileus paralytic [Unknown]
  - Pneumonia [Unknown]
  - Pancreatic cyst [Unknown]
  - Hypertension [Unknown]
  - Abdominoplasty [Unknown]
  - Myocardial infarction [Unknown]
  - Sigmoidectomy [Unknown]
  - Incisional hernia [Unknown]
  - Weight increased [Unknown]
  - Parathyroid tumour benign [Unknown]
  - Suicide attempt [Unknown]
  - Coronary arterial stent insertion [Unknown]
  - Pancreatitis relapsing [Unknown]
  - Device related sepsis [Unknown]
  - Coronary artery disease [Unknown]
  - Arteriosclerosis [Unknown]

NARRATIVE: CASE EVENT DATE: 2006
